FAERS Safety Report 19261860 (Version 1)
Quarter: 2021Q2

REPORT INFORMATION
  Report Type: Spontaneous
  Country: US (occurrence: US)
  Receive Date: 20210515
  Receipt Date: 20210515
  Transmission Date: 20210717
  Serious: No
  Sender: FDA-Public Use
  Company Number: US-TEVA-2021-US-1903682

PATIENT
  Sex: Female

DRUGS (10)
  1. AUSTEDO [Interacting]
     Active Substance: DEUTETRABENAZINE
     Dosage: WEEK 2
     Route: 065
  2. VITAMIN C [Concomitant]
     Active Substance: ASCORBIC ACID
  3. PROZAC [Concomitant]
     Active Substance: FLUOXETINE HYDROCHLORIDE
  4. AUSTEDO [Suspect]
     Active Substance: DEUTETRABENAZINE
     Indication: TARDIVE DYSKINESIA
     Dosage: WEEK 1
     Route: 065
  5. FLINTSTONES WITH IRON 18 MG [Concomitant]
  6. ISOSORBIDE MONONITRATE. [Concomitant]
     Active Substance: ISOSORBIDE MONONITRATE
  7. ZINC. [Concomitant]
     Active Substance: ZINC
  8. AUSTEDO [Interacting]
     Active Substance: DEUTETRABENAZINE
     Dosage: WEEK 3: USE 12 MG TABS
     Route: 065
  9. ALLEGRA [Concomitant]
     Active Substance: FEXOFENADINE HYDROCHLORIDE
  10. PROBIOTIC [Concomitant]
     Active Substance: PROBIOTICS NOS

REACTIONS (1)
  - Drug interaction [Unknown]
